FAERS Safety Report 8321229-6 (Version None)
Quarter: 2012Q2

REPORT INFORMATION
  Report Type: 
  Country: None (occurrence: None)
  Receive Date: 20120430
  Receipt Date: 20120420
  Transmission Date: 20120825
  Serious: No
  Sender: FDA-Public Use
  Company Number: US-JNJFOC-20120409970

PATIENT
  Sex: Female
  Weight: 44.45 kg

DRUGS (2)
  1. DURAGESIC-100 [Suspect]
     Indication: PAIN
     Route: 062
     Dates: start: 20120101, end: 20120401
  2. DURAGESIC-100 [Suspect]
     Route: 062
     Dates: start: 20120401

REACTIONS (3)
  - PRODUCT QUALITY ISSUE [None]
  - WRONG TECHNIQUE IN DRUG USAGE PROCESS [None]
  - THERAPEUTIC RESPONSE INCREASED [None]
